FAERS Safety Report 25112584 (Version 1)
Quarter: 2025Q1

REPORT INFORMATION
  Report Type: Spontaneous
  Country: US (occurrence: US)
  Receive Date: 20250324
  Receipt Date: 20250324
  Transmission Date: 20250409
  Serious: Yes (Other)
  Sender: GUERBET
  Company Number: US-GUERBET / LLC-US-20250048

PATIENT
  Sex: Female
  Weight: 53.64 kg

DRUGS (2)
  1. DOTAREM [Suspect]
     Active Substance: GADOTERATE MEGLUMINE
     Indication: Magnetic resonance imaging
     Route: 042
     Dates: start: 20250130, end: 20250130
  2. DOTAREM [Suspect]
     Active Substance: GADOTERATE MEGLUMINE
     Route: 042
     Dates: start: 20250129, end: 20250129

REACTIONS (6)
  - Tinnitus [Not Recovered/Not Resolved]
  - Fatigue [Recovered/Resolved]
  - Nausea [Recovered/Resolved]
  - Disorientation [Recovered/Resolved]
  - Vertigo [Recovered/Resolved]
  - Feeling abnormal [Recovered/Resolved]

NARRATIVE: CASE EVENT DATE: 20250130
